FAERS Safety Report 6677240-4 (Version None)
Quarter: 2010Q2

REPORT INFORMATION
  Report Type: 
  Country: None (occurrence: None)
  Receive Date: 20100408
  Receipt Date: 20100408
  Transmission Date: 20101027
  Serious: No
  Sender: FDA-Public Use
  Company Number: None

PATIENT
  Age: 4 Year
  Sex: Male
  Weight: 18.5 kg

DRUGS (5)
  1. ZITHROMAX [Suspect]
     Indication: PNEUMONIA
     Dosage: 180 MG Q24 IV
     Route: 042
     Dates: start: 20100217, end: 20100218
  2. ROCEPHIN [Concomitant]
  3. ZANTAC [Concomitant]
  4. TYLENOL-500 [Concomitant]
  5. ALBUTEROL [Concomitant]

REACTIONS (2)
  - APPLICATION SITE VESICLES [None]
  - INFUSION SITE REACTION [None]
